FAERS Safety Report 11964723 (Version 1)
Quarter: 2016Q1

REPORT INFORMATION
  Report Type: Spontaneous
  Country: US (occurrence: None)
  Receive Date: 20160122
  Receipt Date: 20160122
  Transmission Date: 20160526
  Serious: Yes (Other)
  Sender: FDA-Public Use
  Company Number: None

PATIENT
  Age: 48 Year
  Sex: Female
  Weight: 63.5 kg

DRUGS (1)
  1. OXCARBAZEPINE 300MG [Suspect]
     Active Substance: OXCARBAZEPINE
     Dosage: 2 PILLS TIMES A DAY TWICE DAILY TAKEN BY MOUTH
     Route: 048

REACTIONS (1)
  - Tremor [None]

NARRATIVE: CASE EVENT DATE: 20160116
